FAERS Safety Report 14828491 (Version 1)
Quarter: 2018Q2

REPORT INFORMATION
  Report Type: Report from Study
  Country: CH (occurrence: CH)
  Receive Date: 20180430
  Receipt Date: 20180430
  Transmission Date: 20180711
  Serious: Yes (Death, Other)
  Sender: FDA-Public Use
  Company Number: CH-JNJFOC-20180433760

PATIENT
  Age: 17 Year

DRUGS (1)
  1. TRAMADOL HYDROCHLORIDE. [Suspect]
     Active Substance: TRAMADOL HYDROCHLORIDE
     Indication: PAIN
     Route: 048

REACTIONS (4)
  - Respiratory depression [Fatal]
  - Pulmonary oedema [Fatal]
  - Intentional overdose [Fatal]
  - Completed suicide [Fatal]
